FAERS Safety Report 6895454-5 (Version None)
Quarter: 2010Q3

REPORT INFORMATION
  Report Type: 
  Country: None (occurrence: None)
  Receive Date: 20100802
  Receipt Date: 20100729
  Transmission Date: 20110219
  Serious: Yes (Other)
  Sender: FDA-Public Use
  Company Number: AT-BRISTOL-MYERS SQUIBB COMPANY-15091077

PATIENT
  Age: 47 Year
  Sex: Male
  Weight: 75 kg

DRUGS (7)
  1. ABILIFY [Suspect]
     Indication: IMPULSE-CONTROL DISORDER
     Dosage: 5MG/D STARTED ON 08/29MAR10;10MG,29MAR/04APR10. INCREASED TO 15 MG/D ON 05/11APR10.30MG,12APR10
     Route: 048
     Dates: start: 20100412
  2. ABILIFY [Suspect]
     Indication: SCHIZOPHRENIA, PARANOID TYPE
     Dosage: 5MG/D STARTED ON 08/29MAR10;10MG,29MAR/04APR10. INCREASED TO 15 MG/D ON 05/11APR10.30MG,12APR10
     Route: 048
     Dates: start: 20100412
  3. RISPERIDONE [Suspect]
     Indication: SCHIZOPHRENIA, PARANOID TYPE
     Dosage: DEPOT
     Route: 030
     Dates: start: 20080101
  4. ZUCLOPENTHIXOL ACETATE [Suspect]
     Route: 030
     Dates: start: 20080101
  5. ZUCLOPENTHIXOL DECANOATE [Concomitant]
     Indication: SCHIZOPHRENIA, PARANOID TYPE
     Route: 030
     Dates: start: 20080101
  6. PROTHIPENDYL HCL [Concomitant]
     Route: 048
  7. BIPERIDEN HYDROCHLORIDE TAB [Concomitant]
     Route: 048

REACTIONS (1)
  - PSYCHOTIC DISORDER [None]
